FAERS Safety Report 5146551-6 (Version None)
Quarter: 2006Q4

REPORT INFORMATION
  Report Type: 
  Country: None (occurrence: None)
  Receive Date: 20061107
  Receipt Date: 20061107
  Transmission Date: 20070319
  Serious: Yes (Other)
  Sender: FDA-Public Use
  Company Number: None

PATIENT
  Age: 44 Year
  Sex: Female
  Weight: 53.5244 kg

DRUGS (10)
  1. FENTANYL [Suspect]
     Indication: LUMBAR RADICULOPATHY
     Dosage: 100 MCG Q 72 HR.
     Route: 062
     Dates: start: 20050826
  2. FENTANYL [Suspect]
     Indication: SPINAL OSTEOARTHRITIS
     Dosage: 100 MCG Q 72 HR.
     Route: 062
     Dates: start: 20050826
  3. FENTANYL [Suspect]
     Indication: LUMBAR RADICULOPATHY
     Dosage: 100 MCG Q 72 HR.
     Route: 062
     Dates: start: 20060203
  4. FENTANYL [Suspect]
     Indication: SPINAL OSTEOARTHRITIS
     Dosage: 100 MCG Q 72 HR.
     Route: 062
     Dates: start: 20060203
  5. OXYCODONE 5/325 APAP [Concomitant]
  6. GABAPENTIN [Concomitant]
  7. CLONAZEPAM [Concomitant]
  8. ZOLOFT [Concomitant]
  9. ALPRAZOLAM [Concomitant]
  10. TEMAZEPAM [Concomitant]

REACTIONS (3)
  - PHARMACEUTICAL PRODUCT COMPLAINT [None]
  - RASH [None]
  - THERAPEUTIC RESPONSE UNEXPECTED WITH DRUG SUBSTITUTION [None]
